FAERS Safety Report 9758666 (Version 1)
Quarter: 2013Q4

REPORT INFORMATION
  Report Type: Spontaneous
  Country: US (occurrence: None)
  Receive Date: 20131216
  Receipt Date: 20131216
  Transmission Date: 20140711
  Serious: Yes (Other)
  Sender: FDA-Public Use
  Company Number: RB-46831-2012

PATIENT
  Age: 24 Year
  Sex: Male

DRUGS (2)
  1. SUBOXONE 8 MG [Suspect]
     Indication: DRUG DEPENDENCE
     Dosage: (SUBOXONE FILM; 4 TO 8 MG DAILY SUBLINGUAL)
  2. SUBOXONE 8 MG [Suspect]
     Indication: DRUG DEPENDENCE
     Dosage: (4 TO 8 MG DAILY SUBLINGUAL)

REACTIONS (4)
  - Feeling abnormal [None]
  - Headache [None]
  - Nausea [None]
  - Wrong technique in drug usage process [None]
